FAERS Safety Report 9352178 (Version 2)
Quarter: 2013Q2

REPORT INFORMATION
  Report Type: Spontaneous
  Country: BR (occurrence: BR)
  Receive Date: 20130617
  Receipt Date: 20130621
  Transmission Date: 20140414
  Serious: Yes (Other)
  Sender: FDA-Public Use
  Company Number: BR-PFIZER INC-2013131270

PATIENT
  Age: 62 Year
  Sex: Male
  Weight: 118 kg

DRUGS (7)
  1. OLMETEC HCT [Suspect]
     Dosage: [OLMESARTAN MEDOXOMIL 40 MG]/ [HYDROCHLOROTHIAZIDE 12.5 MG], 1X/DAY
     Route: 048
     Dates: start: 20100917
  2. NORVASC [Suspect]
     Dosage: 5 MG, UNK
     Route: 065
  3. GLIFAGE XR [Concomitant]
     Indication: BLOOD GLUCOSE INCREASED
     Dosage: 500 MG, UNK
     Dates: start: 201208
  4. LIPITOR [Concomitant]
     Indication: BLOOD CHOLESTEROL ABNORMAL
     Dosage: 20 MG, 1X/DAY
     Dates: start: 20080605
  5. NAPRIX [Concomitant]
     Indication: BLOOD PRESSURE ABNORMAL
     Dosage: 5 MG, 1X/DAY
     Dates: start: 2006
  6. NATRILIX SR [Concomitant]
     Indication: BLOOD PRESSURE ABNORMAL
     Dosage: 1.5 MG, 1X/DAY
  7. ZYLORIC [Concomitant]
     Indication: BLOOD URIC ACID ABNORMAL
     Dosage: 300 MG, 1X/DAY
     Dates: start: 2012

REACTIONS (1)
  - Thrombosis [Unknown]
